FAERS Safety Report 6141353-6 (Version None)
Quarter: 2009Q2

REPORT INFORMATION
  Report Type: 
  Country: None (occurrence: None)
  Receive Date: 20090402
  Receipt Date: 20090325
  Transmission Date: 20091009
  Serious: Yes (Life-Threatening, Hospitalization)
  Sender: FDA-Public Use
  Company Number: ES-ROCHE-624299

PATIENT
  Age: 46 Year
  Sex: Male

DRUGS (6)
  1. RIVOTRIL [Suspect]
     Indication: EPILEPSY
     Route: 048
     Dates: start: 19900101, end: 20081120
  2. TRANXILIUM [Interacting]
     Indication: ANXIETY
     Route: 048
     Dates: end: 20081120
  3. REXER [Interacting]
     Indication: DEPRESSION
     Route: 048
     Dates: end: 20081120
  4. PHENYTOIN [Interacting]
     Indication: EPILEPSY
     Route: 048
     Dates: start: 19900101, end: 20081120
  5. NEURONTIN [Interacting]
     Indication: EPILEPSY
     Route: 048
     Dates: start: 19900101, end: 20081120
  6. PROZAC [Interacting]
     Indication: EPILEPSY
     Route: 048
     Dates: end: 20081120

REACTIONS (1)
  - SUICIDE ATTEMPT [None]
